FAERS Safety Report 18932301 (Version 1)
Quarter: 2021Q1

REPORT INFORMATION
  Report Type: Report from Study
  Country: RO (occurrence: RO)
  Receive Date: 20210224
  Receipt Date: 20210224
  Transmission Date: 20210420
  Serious: Yes (Hospitalization, Other)
  Sender: FDA-Public Use
  Company Number: RO-GILEAD-2021-0517931

PATIENT
  Age: 55 Year
  Sex: Female

DRUGS (4)
  1. LEDIPASVIR/SOFOSBUVIR [Suspect]
     Active Substance: LEDIPASVIR\SOFOSBUVIR
     Indication: CHRONIC HEPATITIS C
     Dosage: 1 DOSAGE FORM, QD
     Route: 048
     Dates: start: 20200910, end: 20201202
  2. LERIDIP [Concomitant]
  3. ENAP [ENALAPRILAT] [Concomitant]
  4. DIUROCARD [Concomitant]

REACTIONS (3)
  - Blood pressure increased [Not Recovered/Not Resolved]
  - Insomnia [Recovered/Resolved]
  - Lymphadenectomy [Recovered/Resolved]

NARRATIVE: CASE EVENT DATE: 20210209
